FAERS Safety Report 9886151 (Version 9)
Quarter: 2015Q2

REPORT INFORMATION
  Report Type: Report from Study
  Country: NL (occurrence: NL)
  Receive Date: 20140210
  Receipt Date: 20150605
  Transmission Date: 20150821
  Serious: Yes (Hospitalization)
  Sender: FDA-Public Use
  Company Number: NL-JNJFOC-20131118336

PATIENT
  Age: 71 Year
  Sex: Male
  Weight: 71 kg

DRUGS (15)
  1. TEMAZEPAM. [Concomitant]
     Active Substance: TEMAZEPAM
     Indication: INSOMNIA
     Route: 048
     Dates: start: 20130916
  2. PREDNISONE. [Concomitant]
     Active Substance: PREDNISONE
     Indication: PNEUMONIA
     Dosage: PHASE OUT TO 0 MG
     Route: 048
     Dates: start: 20131118, end: 20131122
  3. IBRUTINIB [Suspect]
     Active Substance: IBRUTINIB
     Route: 048
  4. PREDNISONE. [Concomitant]
     Active Substance: PREDNISONE
     Indication: PNEUMONIA
     Route: 048
     Dates: start: 20131031, end: 20131117
  5. ALFUZOSINE [Concomitant]
     Active Substance: ALFUZOSIN HYDROCHLORIDE
     Indication: BENIGN PROSTATIC HYPERPLASIA
     Route: 048
     Dates: end: 20140506
  6. BROMHEXINE [Concomitant]
     Active Substance: BROMHEXINE
     Indication: COUGH
     Route: 048
     Dates: start: 20131030, end: 20140806
  7. OXYCONTIN [Concomitant]
     Active Substance: OXYCODONE HYDROCHLORIDE
     Indication: OSTEOARTHRITIS
     Route: 048
     Dates: start: 201311, end: 20131118
  8. IBRUTINIB [Suspect]
     Active Substance: IBRUTINIB
     Indication: MANTLE CELL LYMPHOMA
     Route: 048
     Dates: start: 20130916
  9. METOPROLOL [Concomitant]
     Active Substance: METOPROLOL
     Indication: ATRIAL FIBRILLATION
     Route: 048
     Dates: start: 201311, end: 20131204
  10. ZOLPIDEM [Concomitant]
     Active Substance: ZOLPIDEM\ZOLPIDEM TARTRATE
     Indication: INSOMNIA
     Route: 048
     Dates: start: 20131028, end: 201311
  11. PREDNISONE. [Concomitant]
     Active Substance: PREDNISONE
     Indication: PLEURAL EFFUSION
     Dosage: PHASE OUT TO 0 MG
     Route: 048
     Dates: start: 20131118, end: 20131122
  12. METOPROLOL [Concomitant]
     Active Substance: METOPROLOL
     Indication: ATRIAL FIBRILLATION
     Route: 048
     Dates: start: 20130905, end: 20140122
  13. PREDNISONE. [Concomitant]
     Active Substance: PREDNISONE
     Indication: PLEURAL EFFUSION
     Route: 048
     Dates: start: 20131031, end: 20131117
  14. FORMOTEROL/BUDESONIDE [Concomitant]
     Active Substance: BUDESONIDE\FORMOTEROL
     Indication: DYSPNOEA
     Dosage: 200/6 MCG
     Route: 055
     Dates: start: 201310, end: 201407
  15. OMEPRAZOLE. [Concomitant]
     Active Substance: OMEPRAZOLE
     Indication: GASTROINTESTINAL DISORDER THERAPY
     Route: 048
     Dates: start: 20131031, end: 201311

REACTIONS (4)
  - Pleural effusion [Recovered/Resolved]
  - Pneumonia [Recovered/Resolved]
  - Anaemia [Recovered/Resolved with Sequelae]
  - Dyspnoea [Recovering/Resolving]

NARRATIVE: CASE EVENT DATE: 20131031
